FAERS Safety Report 6240072-5 (Version None)
Quarter: 2009Q2

REPORT INFORMATION
  Report Type: 
  Country: None (occurrence: None)
  Receive Date: 20090618
  Receipt Date: 20090618
  Transmission Date: 20091009
  Serious: No
  Sender: FDA-Public Use
  Company Number: None

PATIENT
  Sex: Female
  Weight: 81.6475 kg

DRUGS (2)
  1. ZICAM FULL [Suspect]
     Indication: NASOPHARYNGITIS
     Dosage: SWAB NASAL SPRAY GEL NASAL
     Route: 045
     Dates: start: 20041101, end: 20090430
  2. ZICAM FULL [Suspect]
     Indication: PROPHYLAXIS
     Dosage: SWAB NASAL SPRAY GEL NASAL
     Route: 045
     Dates: start: 20041101, end: 20090430

REACTIONS (1)
  - ANOSMIA [None]
